FAERS Safety Report 22880594 (Version 4)
Quarter: 2023Q4

REPORT INFORMATION
  Report Type: Report from Study
  Country: US (occurrence: US)
  Receive Date: 20230829
  Receipt Date: 20231026
  Transmission Date: 20240110
  Serious: Yes (Hospitalization)
  Sender: FDA-Public Use
  Company Number: US-ABBVIE-5385284

PATIENT
  Sex: Female

DRUGS (1)
  1. VENCLEXTA [Suspect]
     Active Substance: VENETOCLAX
     Indication: Chronic lymphocytic leukaemia
     Dosage: FORM STRENGTH-100 MG/1 TABLET BY MOUTH, ONE TIME A DAY PROVIDED
     Route: 048

REACTIONS (3)
  - Cellulitis [Unknown]
  - Pyrexia [Recovered/Resolved]
  - Arthropod bite [Unknown]
